FAERS Safety Report 19675671 (Version 2)
Quarter: 2025Q3

REPORT INFORMATION
  Report Type: Spontaneous
  Country: US (occurrence: US)
  Receive Date: 20210809
  Receipt Date: 20250704
  Transmission Date: 20251021
  Serious: Yes (Other)
  Sender: GLENMARK
  Company Number: US-GLENMARK PHARMACEUTICALS-2021GMK054610

PATIENT

DRUGS (2)
  1. ESTRADIOL [Suspect]
     Active Substance: ESTRADIOL
     Indication: Atrophic vulvovaginitis
     Route: 067
  2. ESTRADIOL [Suspect]
     Active Substance: ESTRADIOL

REACTIONS (6)
  - Vulvovaginal injury [Unknown]
  - Injury associated with device [Unknown]
  - Vaginal haemorrhage [Unknown]
  - Incorrect dose administered by device [Unknown]
  - Device physical property issue [Unknown]
  - Device delivery system issue [Unknown]
